FAERS Safety Report 8054839-4 (Version None)
Quarter: 2012Q1

REPORT INFORMATION
  Report Type: 
  Country: None (occurrence: None)
  Receive Date: 20120119
  Receipt Date: 20120106
  Transmission Date: 20120608
  Serious: Yes (Hospitalization)
  Sender: FDA-Public Use
  Company Number: DE-JNJFOC-20120102924

PATIENT
  Age: 50 Year
  Sex: Male
  Weight: 67 kg

DRUGS (6)
  1. DELIX [Concomitant]
     Route: 065
  2. EZETIMIBE [Concomitant]
     Dosage: 10/20MG
     Route: 065
  3. TENOFOVIR [Concomitant]
     Route: 065
  4. NEBIVOLOL HCL [Concomitant]
     Route: 065
  5. DARUNAVIR ETHANOLATE [Suspect]
     Indication: HIV INFECTION
     Route: 048
     Dates: start: 20110620
  6. RITONAVIR [Suspect]
     Indication: HIV INFECTION
     Route: 048
     Dates: start: 20110620

REACTIONS (1)
  - CALCULUS URINARY [None]
